FAERS Safety Report 6317077-9 (Version None)
Quarter: 2009Q3

REPORT INFORMATION
  Report Type: 
  Country: None (occurrence: None)
  Receive Date: 20090820
  Receipt Date: 20090811
  Transmission Date: 20100115
  Serious: Yes (Hospitalization, Other)
  Sender: FDA-Public Use
  Company Number: FR-AMGEN-UK285763

PATIENT
  Sex: Male

DRUGS (2)
  1. ROMIPLOSTIM [Suspect]
     Indication: IDIOPATHIC THROMBOCYTOPENIC PURPURA
     Route: 058
     Dates: start: 20080223
  2. ROMIPLOSTIM [Suspect]
     Route: 058
     Dates: start: 20080319

REACTIONS (6)
  - DERMATITIS EXFOLIATIVE [None]
  - ERYTHROCYANOSIS [None]
  - ERYTHROMELALGIA [None]
  - PAIN [None]
  - PERIPHERAL ISCHAEMIA [None]
  - PLATELET COUNT INCREASED [None]
